FAERS Safety Report 4817940-1 (Version None)
Quarter: 2005Q4

REPORT INFORMATION
  Report Type: 
  Country: None (occurrence: None)
  Receive Date: 20051102
  Receipt Date: 20051024
  Transmission Date: 20060501
  Serious: Yes (Hospitalization)
  Sender: FDA-Public Use
  Company Number: AT-JNJFOC-20051005185

PATIENT
  Sex: Male

DRUGS (5)
  1. HALDOL [Suspect]
     Route: 030
  2. TEMESTA [Concomitant]
  3. COMBIVENT [Concomitant]
  4. COMBIVENT [Concomitant]
  5. TEMESTA [Concomitant]

REACTIONS (5)
  - ATRIOVENTRICULAR BLOCK COMPLETE [None]
  - FALL [None]
  - GRAND MAL CONVULSION [None]
  - LOSS OF CONSCIOUSNESS [None]
  - SKIN LACERATION [None]
